FAERS Safety Report 6921409-8 (Version None)
Quarter: 2010Q3

REPORT INFORMATION
  Report Type: 
  Country: None (occurrence: None)
  Receive Date: 20100812
  Receipt Date: 20100730
  Transmission Date: 20110219
  Serious: Yes (Hospitalization, Other)
  Sender: FDA-Public Use
  Company Number: PHHY2010US34129

PATIENT
  Sex: Female
  Weight: 68.16 kg

DRUGS (10)
  1. EXJADE [Suspect]
     Indication: SICKLE CELL ANAEMIA
     Dosage: 500 MG, TID
     Route: 048
     Dates: start: 20100507
  2. NORVASC [Concomitant]
     Dosage: 10 MG, DAILY
  3. FLEXERIL [Concomitant]
     Dosage: 10 MG, TID
  4. FOLIC ACID [Concomitant]
  5. VITAMIN D [Concomitant]
  6. TAGAMET [Concomitant]
     Dosage: 400 MG, BID
  7. ATIVAN [Concomitant]
     Dosage: 1 MG, BID
  8. LOMOTIL [Concomitant]
  9. SINGULAIR [Concomitant]
     Dosage: 10 MG, QD
  10. HYDROXYUREA [Concomitant]

REACTIONS (12)
  - ABDOMINAL PAIN UPPER [None]
  - ANAEMIA [None]
  - ASPARTATE AMINOTRANSFERASE INCREASED [None]
  - BACK PAIN [None]
  - BACTERIAL INFECTION [None]
  - BLOOD ALKALINE PHOSPHATASE INCREASED [None]
  - HYPERTENSION [None]
  - PAIN IN EXTREMITY [None]
  - PLATELET COUNT DECREASED [None]
  - PYREXIA [None]
  - SICKLE CELL ANAEMIA WITH CRISIS [None]
  - SPLENIC INFARCTION [None]
